FAERS Safety Report 19169183 (Version 1)
Quarter: 2021Q2

REPORT INFORMATION
  Report Type: Spontaneous
  Country: US (occurrence: US)
  Receive Date: 20210422
  Receipt Date: 20210422
  Transmission Date: 20210717
  Serious: Yes (Other)
  Sender: FDA-Public Use
  Company Number: US-CURRAX PHARMACEUTICALS LLC-US-2021CUR000037

PATIENT
  Age: 38 Year
  Sex: Female

DRUGS (3)
  1. LUMATEPERONE. [Suspect]
     Active Substance: LUMATEPERONE
     Indication: INSOMNIA
     Dosage: 42 MG, QD
     Route: 048
  2. DOXEPIN [Suspect]
     Active Substance: DOXEPIN
     Indication: INSOMNIA
     Dosage: 2 MG, EVERY NIGHT
     Dates: start: 202101
  3. LUMATEPERONE. [Suspect]
     Active Substance: LUMATEPERONE
     Indication: SLEEP DEFICIT

REACTIONS (5)
  - Feeling abnormal [Not Recovered/Not Resolved]
  - Hallucination, auditory [Not Recovered/Not Resolved]
  - Disorientation [Not Recovered/Not Resolved]
  - Stress [Not Recovered/Not Resolved]
  - Prescription drug used without a prescription [Unknown]

NARRATIVE: CASE EVENT DATE: 202101
